FAERS Safety Report 23908998 (Version 1)
Quarter: 2024Q2

REPORT INFORMATION
  Report Type: Spontaneous
  Country: US (occurrence: US)
  Receive Date: 20240528
  Receipt Date: 20240528
  Transmission Date: 20240716
  Serious: Yes (Life-Threatening, Hospitalization, Other)
  Sender: FDA-Public Use
  Company Number: None

PATIENT
  Age: 73 Year
  Sex: Male

DRUGS (3)
  1. TACROLIMUS [Suspect]
     Active Substance: TACROLIMUS
     Indication: Product used for unknown indication
     Route: 048
  2. NIRMATRELVIR [Suspect]
     Active Substance: NIRMATRELVIR
     Indication: COVID-19
  3. RITONAVIR [Suspect]
     Active Substance: RITONAVIR
     Indication: COVID-19

REACTIONS (3)
  - Drug interaction [Recovered/Resolved]
  - Metabolic encephalopathy [Unknown]
  - Toxicity to various agents [Recovered/Resolved]
